FAERS Safety Report 16476892 (Version 1)
Quarter: 2019Q2

REPORT INFORMATION
  Report Type: Report from Study
  Country: IT (occurrence: IT)
  Receive Date: 20190626
  Receipt Date: 20190626
  Transmission Date: 20190711
  Serious: Yes (Hospitalization, Other)
  Sender: FDA-Public Use
  Company Number: IT-ROCHE-2168226

PATIENT
  Age: 64 Year
  Sex: Female
  Weight: 55 kg

DRUGS (23)
  1. TRASTUZUMAB. [Suspect]
     Active Substance: TRASTUZUMAB
     Indication: HER-2 POSITIVE BREAST CANCER
     Dosage: LAST DOSE ON 07/MAY/2018
     Route: 042
     Dates: start: 20180507
  2. FLUCONAZOLO [Concomitant]
     Indication: DYSGEUSIA
     Route: 065
     Dates: start: 20180626, end: 20180727
  3. CHLORPHENIRAMINE [CHLORPHENAMINE] [Concomitant]
     Active Substance: CHLORPHENIRAMINE
     Route: 065
     Dates: start: 20180507
  4. CEFEPIME [Concomitant]
     Active Substance: CEFEPIME HYDROCHLORIDE
     Indication: FEBRILE NEUTROPENIA
     Dosage: ONGOING = NOT CHECKED
     Route: 065
     Dates: start: 20180626, end: 20180717
  5. EUTIROX [Concomitant]
     Active Substance: LEVOTHYROXINE SODIUM
     Route: 065
  6. DIBASE [Concomitant]
     Active Substance: CHOLECALCIFEROL
     Route: 065
     Dates: start: 20180727
  7. AMIKACINA [AMIKACIN] [Concomitant]
     Indication: FEBRILE NEUTROPENIA
     Dosage: ONGOING = NOT CHECKED
     Route: 065
     Dates: start: 20180630, end: 20180702
  8. PERTUZUMAB. [Suspect]
     Active Substance: PERTUZUMAB
     Indication: HER-2 POSITIVE BREAST CANCER
     Dosage: LAST DOSE ON 07/MAY/2018
     Route: 042
     Dates: start: 20180507
  9. PLASIL [METOCLOPRAMIDE] [Concomitant]
     Indication: NAUSEA
     Dosage: ONGOING = NOT CHECKED
     Route: 065
     Dates: start: 20180625, end: 20180731
  10. NATECAL [Concomitant]
     Active Substance: CALCIUM CARBONATE\CHOLECALCIFEROL
     Route: 065
     Dates: end: 20180618
  11. ENAPREN [Concomitant]
     Active Substance: ENALAPRIL MALEATE
     Route: 065
     Dates: end: 20180615
  12. TAXOTERE [Suspect]
     Active Substance: DOCETAXEL
     Indication: HER-2 POSITIVE BREAST CANCER
     Dosage: LAST DOSE ON 19/JUN/2018
     Route: 042
     Dates: start: 20180507
  13. SOLDESAM [Concomitant]
     Active Substance: DEXAMETHASONE
     Route: 065
     Dates: start: 20180502
  14. ZOLOFT [Concomitant]
     Active Substance: SERTRALINE HYDROCHLORIDE
     Route: 065
     Dates: start: 20160803
  15. LEVOFLOXACIN. [Concomitant]
     Active Substance: LEVOFLOXACIN
     Indication: FEBRILE NEUTROPENIA
     Dosage: ONGOING = NOT CHECKED
     Route: 065
     Dates: start: 20180626, end: 20180727
  16. MYCOSTATIN [Concomitant]
     Active Substance: NYSTATIN
     Indication: DYSPHAGIA
     Dosage: ONGOING = NOT CHECKED
     Route: 065
     Dates: start: 20180615, end: 20180625
  17. DUROGESIC [Concomitant]
     Active Substance: FENTANYL
     Route: 065
     Dates: start: 20180502
  18. TEICOPLANINA [Concomitant]
     Active Substance: TEICOPLANIN
     Indication: FEBRILE NEUTROPENIA
     Dosage: ONGOING = NOT CHECKED
     Route: 065
     Dates: start: 20180702, end: 20180717
  19. DEXAMETHASONE. [Concomitant]
     Active Substance: DEXAMETHASONE
     Route: 065
     Dates: start: 20180507, end: 20181002
  20. POLASE [ASPARTIC ACID;MAGNESIUM CITRATE;POTASSIUM GLUCONATE] [Concomitant]
     Indication: HYPOKALAEMIA
     Dosage: ONGOING = NOT CHECKED
     Route: 065
     Dates: start: 20180615, end: 20180626
  21. TAXOL [Suspect]
     Active Substance: PACLITAXEL
     Indication: BREAST CANCER
     Dosage: LAST DOSE ON 23/OCT/2018
     Route: 042
     Dates: start: 20180731
  22. RANITIDINE. [Concomitant]
     Active Substance: RANITIDINE
     Route: 065
     Dates: start: 20180507, end: 20181002
  23. BISOPROLOLO [Concomitant]
     Active Substance: BISOPROLOL FUMARATE
     Route: 065
     Dates: end: 20180615

REACTIONS (13)
  - Fatigue [Recovered/Resolved]
  - Dysgeusia [Recovered/Resolved]
  - Dysphagia [Recovered/Resolved]
  - Dysaesthesia [Unknown]
  - Hypokalaemia [Recovered/Resolved]
  - Palmar-plantar erythrodysaesthesia syndrome [Recovered/Resolved]
  - Nausea [Recovered/Resolved]
  - Performance status decreased [Recovered/Resolved]
  - Dysgeusia [Recovered/Resolved]
  - Diarrhoea [Recovered/Resolved]
  - Diarrhoea [Recovered/Resolved]
  - Febrile neutropenia [Recovered/Resolved]
  - Nausea [Unknown]

NARRATIVE: CASE EVENT DATE: 20180615
